FAERS Safety Report 5135918-8 (Version None)
Quarter: 2006Q4

REPORT INFORMATION
  Report Type: 
  Country: None (occurrence: None)
  Receive Date: 20061020
  Receipt Date: 20061011
  Transmission Date: 20070319
  Serious: Yes (Hospitalization, Other)
  Sender: FDA-Public Use
  Company Number: 148565ISR

PATIENT
  Age: 32 Year
  Sex: Female

DRUGS (1)
  1. METOPROLOL TARTRATE [Suspect]

REACTIONS (6)
  - CARDIAC FAILURE [None]
  - CARDIOMYOPATHY [None]
  - PHAEOCHROMOCYTOMA [None]
  - PULMONARY OEDEMA [None]
  - TUMOUR NECROSIS [None]
  - VENTRICULAR HYPERTROPHY [None]
